FAERS Safety Report 6162070-2 (Version None)
Quarter: 2009Q2

REPORT INFORMATION
  Report Type: 
  Country: None (occurrence: None)
  Receive Date: 20090421
  Receipt Date: 20090409
  Transmission Date: 20091009
  Serious: Yes (Other)
  Sender: FDA-Public Use
  Company Number: CH-ELI_LILLY_AND_COMPANY-CH200904002011

PATIENT
  Age: 63 Year
  Sex: Male

DRUGS (3)
  1. CIALIS [Suspect]
     Indication: ORGANIC ERECTILE DYSFUNCTION
     Dosage: 10 MG, APPROXIMATELY TWICE A MONTH
     Route: 048
  2. ALFUZOSIN HCL [Interacting]
     Indication: BENIGN PROSTATIC HYPERPLASIA
     Dosage: 10 MG, DAILY (1/D)
     Route: 048
     Dates: start: 20070101
  3. NEXIUM [Concomitant]
     Dosage: 20 MG, DAILY (1/D)
     Route: 048
     Dates: start: 20040101

REACTIONS (2)
  - BLINDNESS TRANSIENT [None]
  - DRUG INTERACTION [None]
